FAERS Safety Report 8921441 (Version 1)
Quarter: 2012Q4

REPORT INFORMATION
  Report Type: 
  Country: US (occurrence: US)
  Receive Date: 20121122
  Receipt Date: 20121122
  Transmission Date: 20130627
  Serious: Yes (Hospitalization, Other)
  Sender: FDA-Public Use
  Company Number: US-PAR PHARMACEUTICAL, INC-2012SCPR004719

PATIENT

DRUGS (17)
  1. NEOSTIGMINE METHYLSULFATE [Concomitant]
     Indication: PRODUCT USED FOR UNKNOWN INDICATION
     Dosage: 5 mg, single
     Route: 042
  2. GLYCOPYRROLATE [Concomitant]
     Indication: PRODUCT USED FOR UNKNOWN INDICATION
     Dosage: 1 mg, single
     Route: 042
  3. FAMOTIDINE [Concomitant]
     Indication: PRODUCT USED FOR UNKNOWN INDICATION
     Dosage: 20 mg, bid
     Route: 042
  4. METOPROLOL [Concomitant]
     Indication: PRODUCT USED FOR UNKNOWN INDICATION
     Dosage: 25 mg, bid
     Route: 048
  5. METOPROLOL [Concomitant]
     Dosage: 5 mg, UNK
     Route: 042
  6. NALOXONE [Suspect]
     Indication: PRODUCT USED FOR UNKNOWN INDICATION
     Dosage: 0.4 mg, Unknown
     Route: 042
  7. METOCLOPRAMIDE [Suspect]
     Indication: GASTRIC HYPOMOTILITY
     Dosage: 10 mg, Every 6 hours
     Route: 042
  8. MORPHINE SULFATE [Concomitant]
     Indication: PRODUCT USED FOR UNKNOWN INDICATION
     Dosage: 10 mg, Unknown
  9. MORPHINE SULFATE [Concomitant]
     Dosage: 2 mg, every hour, as needed
  10. CARBIDOPA LEVODOPA [Concomitant]
     Indication: PRODUCT USED FOR UNKNOWN INDICATION
     Dosage: 1 DF, Every 12 hours
     Route: 048
  11. LISINOPRIL [Concomitant]
     Indication: PRODUCT USED FOR UNKNOWN INDICATION
     Dosage: 10 mg daily
     Route: 048
  12. FUROSEMIDE [Concomitant]
     Indication: PRODUCT USED FOR UNKNOWN INDICATION
     Dosage: 20 mg, daily
     Route: 048
  13. POLYETHYLENE GLYCOL [Concomitant]
     Indication: CONSTIPATION
     Dosage: 17 g, daily, as needed
     Route: 048
  14. INSULIN ISOPHANE [Concomitant]
     Indication: TYPE 2 DIABETES MELLITUS
     Dosage: 20 units every morning and 16 units
     Route: 058
  15. INSULIN ISOPHANE [Concomitant]
     Dosage: 3 units, via moderate sliding scale
     Route: 058
  16. ERTAPENEM [Concomitant]
     Indication: PRODUCT USED FOR UNKNOWN INDICATION
     Dosage: 1 g, daily
     Route: 042
  17. ONDANSETRON [Concomitant]
     Indication: PRODUCT USED FOR UNKNOWN INDICATION
     Dosage: 4 mg, single
     Route: 042

REACTIONS (2)
  - Metabolic encephalopathy [Recovering/Resolving]
  - Parkinson^s disease [Recovering/Resolving]
